FAERS Safety Report 4895535-1 (Version None)
Quarter: 2006Q1

REPORT INFORMATION
  Report Type: 
  Country: None (occurrence: None)
  Receive Date: 20060125
  Receipt Date: 20060112
  Transmission Date: 20060701
  Serious: Yes (Other)
  Sender: FDA-Public Use
  Company Number: 2006007737

PATIENT
  Age: 78 Year
  Sex: Female
  Weight: 63.5036 kg

DRUGS (10)
  1. DETROL LA [Suspect]
     Indication: HYPERTONIC BLADDER
     Dosage: 4 MG (4 MG, 1 IN 1 D)
  2. TRAMADOL (TRAMADOL) [Suspect]
     Indication: ARTHRITIS
     Dosage: 50 MG (50 MG, BID INTERVAL: DAILY)
     Dates: start: 20051216, end: 20060101
  3. DARVOCET [Suspect]
     Indication: ARTHRITIS
  4. CALCIUM (CALCIUM) [Suspect]
     Indication: MINERAL SUPPLEMENTATION
  5. ALL OTHER THERAPEUTIC PRODUCTS (ALL OTHER THERAPEUTIC PRODUCTS) [Concomitant]
  6. LEVOXYL [Concomitant]
  7. EVISTA [Concomitant]
  8. PROMETHAZINE [Concomitant]
  9. ACETAMINOPHEN [Concomitant]
  10. VITAMINS (VITAMINS) [Concomitant]

REACTIONS (11)
  - ABNORMAL BEHAVIOUR [None]
  - ARTHRITIS [None]
  - CATARACT [None]
  - CONSTIPATION [None]
  - CORNEAL INFECTION [None]
  - DRUG INTERACTION [None]
  - DRY MOUTH [None]
  - EYE DISORDER [None]
  - EYE SWELLING [None]
  - TREMOR [None]
  - VISUAL FIELD DEFECT [None]
